FAERS Safety Report 8223564-9 (Version None)
Quarter: 2012Q1

REPORT INFORMATION
  Report Type: 
  Country: None (occurrence: None)
  Receive Date: 20120321
  Receipt Date: 20120316
  Transmission Date: 20120608
  Serious: Yes (Hospitalization, Other)
  Sender: FDA-Public Use
  Company Number: US-PFIZER INC-2011151514

PATIENT
  Sex: Female

DRUGS (3)
  1. ZOLOFT [Concomitant]
     Indication: DEPRESSION
     Dosage: UNK
     Dates: start: 19900101
  2. CHANTIX [Suspect]
     Indication: SMOKING CESSATION THERAPY
     Dosage: 1 MG, 2X/DAY
     Route: 048
     Dates: start: 20060401, end: 20100201
  3. ATENOLOL [Concomitant]
     Indication: MITRAL VALVE PROLAPSE
     Dosage: UNK
     Dates: start: 19750101

REACTIONS (3)
  - DEPRESSION [None]
  - ANXIETY [None]
  - SUICIDE ATTEMPT [None]
